FAERS Safety Report 11682065 (Version 1)
Quarter: 2015Q4

REPORT INFORMATION
  Report Type: Spontaneous
  Country: US (occurrence: US)
  Receive Date: 20151029
  Receipt Date: 20151029
  Transmission Date: 20160304
  Serious: No
  Sender: FDA-Public Use
  Company Number: US-ENDO PHARMACEUTICALS INC.-2015-001061

PATIENT
  Sex: Female

DRUGS (1)
  1. ALPRAZOLAM TABLETS 1 MG [Suspect]
     Active Substance: ALPRAZOLAM
     Indication: PRODUCT USED FOR UNKNOWN INDICATION
     Route: 048
     Dates: start: 1997

REACTIONS (8)
  - Pruritus [Unknown]
  - Drug effect decreased [Not Recovered/Not Resolved]
  - Heart rate increased [Unknown]
  - Blood pressure increased [Unknown]
  - Migraine [Unknown]
  - Drug ineffective [Not Recovered/Not Resolved]
  - Anxiety [Unknown]
  - Insomnia [Not Recovered/Not Resolved]
